FAERS Safety Report 16763050 (Version 2)
Quarter: 2019Q3

REPORT INFORMATION
  Report Type: Spontaneous
  Country: ES (occurrence: ES)
  Receive Date: 20190902
  Receipt Date: 20190930
  Transmission Date: 20191005
  Serious: Yes (Life-Threatening, Hospitalization)
  Sender: FDA-Public Use
  Company Number: ES-SUN PHARMACEUTICAL INDUSTRIES LTD-2019RR-219306

PATIENT
  Age: 47 Year
  Sex: Female

DRUGS (6)
  1. OLANZAPINA (2770A) [Concomitant]
     Active Substance: OLANZAPINE
     Indication: OBSESSIVE-COMPULSIVE DISORDER
     Dosage: 2.5 MILLIGRAM, DAILY
     Route: 048
     Dates: start: 20170718, end: 20180628
  2. DIAZEPAM (730A) [Concomitant]
     Active Substance: DIAZEPAM
     Indication: OBSESSIVE-COMPULSIVE DISORDER
     Dosage: 15 MILLIGRAM, DAILY
     Route: 048
     Dates: start: 20121004, end: 20180628
  3. DIAZEPAM (730A) [Interacting]
     Active Substance: DIAZEPAM
     Indication: SUICIDE ATTEMPT
     Dosage: IN TOTAL
     Route: 048
     Dates: start: 20180629, end: 20180629
  4. OLANZAPINE. [Suspect]
     Active Substance: OLANZAPINE
     Indication: SUICIDE ATTEMPT
     Dosage: IN TOTAL
     Route: 048
     Dates: start: 20180629, end: 20180629
  5. DESVENLAFAXINA SUCCINATO MONOHIDRATO (8296LY) [Interacting]
     Active Substance: DESVENLAFAXINE SUCCINATE
     Indication: SUICIDE ATTEMPT
     Dosage: IN TOTAL
     Route: 048
     Dates: start: 20180629, end: 20180629
  6. DESVENLAFAXINA SUCCINATO MONOHIDRATO (8296LY) [Concomitant]
     Active Substance: DESVENLAFAXINE SUCCINATE
     Indication: OBSESSIVE-COMPULSIVE DISORDER
     Dosage: 50 MILLIGRAM, DAILY
     Route: 048
     Dates: start: 20180314, end: 20180628

REACTIONS (2)
  - Suicide attempt [Recovered/Resolved]
  - Depressed level of consciousness [Recovered/Resolved]

NARRATIVE: CASE EVENT DATE: 20180629
